FAERS Safety Report 6600966-5 (Version None)
Quarter: 2010Q1

REPORT INFORMATION
  Report Type: 
  Country: None (occurrence: None)
  Receive Date: 20100225
  Receipt Date: 20100215
  Transmission Date: 20100710
  Serious: Yes (Death)
  Sender: FDA-Public Use
  Company Number: US-JNJFOC-20081007044

PATIENT
  Sex: Male
  Weight: 68.49 kg

DRUGS (2)
  1. FENTANYL CITRATE [Suspect]
     Indication: DRUG ABUSE
     Route: 062
  2. CITALOPRAM HYDROBROMIDE [Concomitant]

REACTIONS (3)
  - DRUG ABUSE [None]
  - NARCOTIC INTOXICATION [None]
  - WRONG TECHNIQUE IN DRUG USAGE PROCESS [None]
